FAERS Safety Report 7329807-8 (Version None)
Quarter: 2011Q1

REPORT INFORMATION
  Report Type: 
  Country: None (occurrence: None)
  Receive Date: 20110303
  Receipt Date: 20110207
  Transmission Date: 20110831
  Serious: No
  Sender: FDA-Public Use
  Company Number: US-B.I. PHARMACEUTICALS,INC./RIDGEFIELD-2011-BP-03840BP

PATIENT
  Age: 82 Year
  Sex: Female

DRUGS (4)
  1. PRADAXA [Suspect]
     Indication: ATRIAL FIBRILLATION
     Dosage: 300 MG
     Route: 048
     Dates: start: 20110120, end: 20110205
  2. ASACOL [Concomitant]
     Indication: COLITIS
     Route: 048
  3. SYNTHROID [Concomitant]
     Indication: THYROID DISORDER
     Route: 048
  4. LASIX [Concomitant]
     Indication: CARDIAC DISORDER
     Route: 048
     Dates: start: 20110101

REACTIONS (3)
  - CHEST PAIN [None]
  - OESOPHAGEAL PAIN [None]
  - DYSPEPSIA [None]
